FAERS Safety Report 17354791 (Version 2)
Quarter: 2020Q1

REPORT INFORMATION
  Report Type: Spontaneous
  Country: JP (occurrence: JP)
  Receive Date: 20200131
  Receipt Date: 20200205
  Transmission Date: 20200409
  Serious: Yes (Hospitalization, Other)
  Sender: FDA-Public Use
  Company Number: NVSJ2020JP001122

PATIENT
  Age: 69 Year
  Sex: Male
  Weight: 42 kg

DRUGS (4)
  1. SUNITINIB MALATE. [Suspect]
     Active Substance: SUNITINIB MALATE
     Dosage: UNK,ADMINIATRATED FOR 4WEEKS AND INTERRUPTED FOR 2 WEEKS.
     Route: 048
  2. SUNITINIB MALATE. [Suspect]
     Active Substance: SUNITINIB MALATE
     Dosage: 25 MG
     Route: 048
     Dates: start: 201309
  3. ZOLEDRONIC ACID [Suspect]
     Active Substance: ZOLEDRONIC ACID
     Indication: RENAL CANCER
     Dosage: 4 MG, QMO
     Route: 041
  4. SUNITINIB MALATE. [Suspect]
     Active Substance: SUNITINIB MALATE
     Indication: RENAL CANCER
     Dosage: 37.5 MG,ADMINIATRATED FOR 4WEEKS AND INTERRUPTED FOR 2 WEEKS.
     Route: 048

REACTIONS (13)
  - Purulence [Unknown]
  - Dehydration [Unknown]
  - Swelling [Unknown]
  - Cachexia [Recovering/Resolving]
  - Osteonecrosis of jaw [Unknown]
  - Hypoaesthesia [Unknown]
  - Tooth disorder [Unknown]
  - Renal impairment [Unknown]
  - Exposed bone in jaw [Unknown]
  - Dental fistula [Unknown]
  - Pain [Recovering/Resolving]
  - Hyperkalaemia [Recovering/Resolving]
  - Erythema [Unknown]

NARRATIVE: CASE EVENT DATE: 201307
